FAERS Safety Report 10626027 (Version 2)
Quarter: 2015Q1

REPORT INFORMATION
  Report Type: Report from Study
  Country: DE (occurrence: DE)
  Receive Date: 20141204
  Receipt Date: 20150115
  Transmission Date: 20150720
  Serious: Yes (Hospitalization, Other)
  Sender: FDA-Public Use
  Company Number: DE-BAYER-2014-176473

PATIENT
  Age: 81 Year
  Sex: Male

DRUGS (2)
  1. UNKNOWN TRADE NAME BUT NOT KOGENATE [Suspect]
     Active Substance: ANTIHEMOPHILIC FACTOR, HUMAN RECOMBINANT
     Indication: FACTOR VIII DEFICIENCY
     Dosage: UNK UNK, BID
  2. UNKNOWN TRADE NAME BUT NOT KOGENATE [Suspect]
     Active Substance: ANTIHEMOPHILIC FACTOR, HUMAN RECOMBINANT
     Indication: PATELLA REPLACEMENT

REACTIONS (10)
  - Fibrin D dimer increased [None]
  - Skin haemorrhage [None]
  - Haemoglobin decreased [None]
  - Intervertebral discitis [Recovering/Resolving]
  - Haemarthrosis [None]
  - Anti factor VIII antibody positive [None]
  - Subcutaneous haematoma [None]
  - Synovitis [Recovering/Resolving]
  - Muscle haemorrhage [None]
  - Factor VIII inhibition [None]
